FAERS Safety Report 8612269-8 (Version None)
Quarter: 2012Q3

REPORT INFORMATION
  Report Type: 
  Country: None (occurrence: None)
  Receive Date: 20120822
  Receipt Date: 20120814
  Transmission Date: 20120928
  Serious: Yes (Hospitalization)
  Sender: FDA-Public Use
  Company Number: US-ACTELION-A-NJ2011-55213

PATIENT
  Age: 62 Year
  Sex: Female

DRUGS (3)
  1. ADCIRCA [Concomitant]
  2. EPOPROSTENOL SODIUM [Suspect]
     Indication: PULMONARY ARTERIAL HYPERTENSION
     Dosage: 17 NG/KG, PER MIN
     Route: 041
     Dates: start: 20100527
  3. COUMADIN [Concomitant]

REACTIONS (7)
  - DEHYDRATION [None]
  - CATHETER SITE PAIN [None]
  - CATHETER SITE ERYTHEMA [None]
  - MOUTH ULCERATION [None]
  - CATHETER SITE INFECTION [None]
  - CATHETER SITE SWELLING [None]
  - CATHETER SITE DISCHARGE [None]
